FAERS Safety Report 10029868 (Version 3)
Quarter: 2014Q2

REPORT INFORMATION
  Report Type: Spontaneous
  Country: US (occurrence: None)
  Receive Date: 20140319
  Receipt Date: 20140423
  Transmission Date: 20141212
  Serious: Yes (Death)
  Sender: FDA-Public Use
  Company Number: 2014US001383

PATIENT
  Sex: Female

DRUGS (21)
  1. GLASSIA [Suspect]
     Indication: PRODUCT USED FOR UNKNOWN INDICATION
     Route: 042
  2. METOPROLOL TARTRATE (METOPROLOL TARTRATE) [Concomitant]
  3. CYMBALTA [Concomitant]
  4. ASPIRIN (ACETYLSALICYLIC ACID) [Concomitant]
  5. IRON (IRON) [Concomitant]
  6. VITAMIN C /00008001/ (ASCORBIC ACID) [Concomitant]
  7. NEXIUM /01479302/ (ESOMEPRAZOLE MAGNESIUM) [Concomitant]
  8. WARFARIN (WARFARIN) [Concomitant]
  9. FLOMAX /00889901/ (MORNIFLUMATE) [Concomitant]
  10. FOSAMAX (ALENDRONATE SODIUM) [Concomitant]
  11. SPIRIVA [Concomitant]
  12. FORADIL (FORMOTEROL FUMARATE) [Concomitant]
  13. ALBUTEROL /00139501/ (SALBUTAMOL) [Concomitant]
  14. PULMICORT (BUDESONIDE) [Concomitant]
  15. PREDNISONE [Concomitant]
  16. PROAIR (SALBUTAMOL SULFATE) [Concomitant]
  17. CLOTRIMAZOLE [Concomitant]
  18. THEOPHYLLINE [Concomitant]
  19. CALCIUM (CALCIUM) [Concomitant]
  20. VITAMIN D / 00107901/ (ERGOCALCIFEROL) [Concomitant]
  21. ACETAMINOPHEN W/CODEINE (CODEINE, PARACETAMOL) [Concomitant]

REACTIONS (1)
  - Pancreatic carcinoma [None]
